FAERS Safety Report 4359538-8 (Version None)
Quarter: 2004Q2

REPORT INFORMATION
  Report Type: 
  Country: None (occurrence: None)
  Receive Date: 20040514
  Receipt Date: 20040514
  Transmission Date: 20050107
  Serious: Yes (Hospitalization)
  Sender: FDA-Public Use
  Company Number: None

PATIENT
  Age: 81 Year
  Sex: Male

DRUGS (8)
  1. LISINOPRIL [Suspect]
     Indication: HYPERTENSION
     Dosage: 10 MG QD
     Dates: start: 20010101
  2. GUAIFENESIN [Concomitant]
  3. NITROGLYCERIN [Concomitant]
  4. ZOCOR [Concomitant]
  5. TERAZOSIN HCL [Concomitant]
  6. FELODIPINE [Concomitant]
  7. DILANTIN [Concomitant]
  8. ASPIRIN [Concomitant]

REACTIONS (1)
  - HYPERKALAEMIA [None]
